FAERS Safety Report 17969983 (Version 1)
Quarter: 2020Q3

REPORT INFORMATION
  Report Type: Spontaneous
  Country: JP (occurrence: JP)
  Receive Date: 20200701
  Receipt Date: 20200701
  Transmission Date: 20201103
  Serious: Yes (Other)
  Sender: FDA-Public Use
  Company Number: NVSC2020JP184776

PATIENT

DRUGS (3)
  1. PREDNISOLONE. [Suspect]
     Active Substance: PREDNISOLONE
     Indication: PLASMA CELL MYELOMA
     Dosage: 60 MG/M2 (ON DAYS 1?4 OF A CYCLE 1 OF 6 WEEK)
     Route: 048
  2. MELPHALAN. [Suspect]
     Active Substance: MELPHALAN
     Indication: PLASMA CELL MYELOMA
     Dosage: 9 MG/M2, (DAYS 1?4 OF CYCLE 1 OF 6 WEEKS)
     Route: 048
  3. BORTEZOMIB. [Suspect]
     Active Substance: BORTEZOMIB
     Indication: PLASMA CELL MYELOMA
     Dosage: 1?3 MG/M2 (DAYS 1, 4, 8, 11, 22, 25, 29, 32 OF CYCLE 1 OF 6 WEEKS)
     Route: 065

REACTIONS (1)
  - Acute kidney injury [Unknown]
